FAERS Safety Report 7906720-6 (Version None)
Quarter: 2011Q4

REPORT INFORMATION
  Report Type: 
  Country: None (occurrence: None)
  Receive Date: 20111110
  Receipt Date: 20111102
  Transmission Date: 20120403
  Serious: Yes (Hospitalization)
  Sender: FDA-Public Use
  Company Number: JP-B.I. PHARMACEUTICALS,INC./RIDGEFIELD-2011-BP-24415YA

PATIENT
  Sex: Male
  Weight: 59.1 kg

DRUGS (19)
  1. EBASTEL (EBASTINE) ORODISPERSIBLE CR TABLET [Concomitant]
  2. GASTER (FAMOTIDINE) ORODISPERSIBLE CR TABLET, [Concomitant]
  3. BAYNAS (RAMATROBAN) [Concomitant]
  4. WARFARIN SODIUM [Concomitant]
  5. PLAVIX [Concomitant]
  6. TAMSULOSIN HCL [Suspect]
     Indication: BENIGN PROSTATIC HYPERPLASIA
     Dosage: 0.2 MG
     Route: 048
     Dates: start: 20110928, end: 20111008
  7. MAGLAX (MAGNESIUM OXIDE) [Concomitant]
  8. METHYCOBAL (MECOBALAMIN) [Concomitant]
  9. ASPIRIN [Concomitant]
  10. BISOPROLOL FUMARATE [Concomitant]
  11. CONIEL (BENIDIPINE HYDROCHLORIDE) [Concomitant]
  12. FLIVAS (NAFTOPIDIL) ORODISPERSIBLE CR TABLET [Concomitant]
     Dates: start: 20110907, end: 20110927
  13. AVELOX [Concomitant]
     Route: 048
     Dates: start: 20111007
  14. ALLOPURINOL [Concomitant]
  15. MUCOSOLVAN (AMBROXOL HYDROCHLORIDE) [Concomitant]
     Dates: start: 20110701
  16. TORSEMIDE [Concomitant]
  17. DIART (AZOSEMIDE) [Concomitant]
  18. CRESTOR [Concomitant]
  19. YODEL S (SENNA EXTRACT) [Concomitant]

REACTIONS (1)
  - PNEUMONIA [None]
